FAERS Safety Report 8076816-X (Version None)
Quarter: 2011Q4

REPORT INFORMATION
  Report Type: 
  Country: None (occurrence: None)
  Receive Date: 20111221
  Receipt Date: 20101214
  Transmission Date: 20120403
  Serious: Yes (Other)
  Sender: FDA-Public Use
  Company Number: PHHY2009US66631

PATIENT
  Age: 69 Year
  Sex: Male

DRUGS (4)
  1. EXJADE [Suspect]
     Indication: CHELATION THERAPY
     Dosage: 500 MG, ORAL
     Route: 048
  2. EXJADE [Suspect]
     Indication: IRON OVERLOAD
     Dosage: 500 MG, ORAL
     Route: 048
  3. CAMPATH [Concomitant]
  4. EXJADE [Suspect]
     Dosage: 1000MG/DAILY, ORAL
     Route: 048
     Dates: start: 20090401, end: 20090701

REACTIONS (1)
  - RASH [None]
